FAERS Safety Report 9761353 (Version 1)
Quarter: 2013Q4

REPORT INFORMATION
  Report Type: Spontaneous
  Country: FR (occurrence: FR)
  Receive Date: 20131216
  Receipt Date: 20131216
  Transmission Date: 20140711
  Serious: Yes (Death, Hospitalization)
  Sender: FDA-Public Use
  Company Number: FR-SA-2013SA127417

PATIENT
  Age: 33 Year
  Sex: Male
  Weight: 169 kg

DRUGS (15)
  1. METHOTREXATE [Suspect]
     Indication: CENTRAL NERVOUS SYSTEM LYMPHOMA
     Route: 042
     Dates: start: 20130705, end: 20130711
  2. LOVENOX [Suspect]
     Indication: PRODUCT USED FOR UNKNOWN INDICATION
     Route: 058
     Dates: start: 20130627, end: 20130715
  3. VIRAMUNE [Suspect]
     Indication: HIV TEST POSITIVE
     Route: 048
     Dates: start: 20130703, end: 20130716
  4. KEPPRA [Suspect]
     Indication: EPILEPSY
     Route: 042
     Dates: start: 20130702, end: 20130716
  5. WELLVONE [Suspect]
     Indication: PNEUMOCYSTIS JIROVECII PNEUMONIA
     Route: 048
     Dates: start: 20130620, end: 20130716
  6. ZIAGEN [Concomitant]
     Indication: HIV TEST POSITIVE
     Route: 048
  7. CALCIUM FOLINATE [Concomitant]
     Route: 048
  8. EPIVIR [Concomitant]
     Indication: HIV TEST POSITIVE
     Route: 048
  9. MULTIVITAMINS [Concomitant]
     Dates: start: 20130702
  10. SOLUMEDROL [Concomitant]
     Dates: start: 20130702, end: 20130716
  11. CERUMENOL [Concomitant]
     Dates: start: 20130701
  12. PARACETAMOL [Concomitant]
     Dates: start: 20130620
  13. ORACILLINE [Concomitant]
     Indication: STAPHYLOCOCCAL BACTERAEMIA
  14. KALETRA [Concomitant]
     Indication: HIV TEST POSITIVE
     Route: 048
     Dates: start: 20130625, end: 20130716
  15. FUNGIZONE [Concomitant]
     Dates: start: 20130624

REACTIONS (3)
  - Anaemia [Fatal]
  - Thrombocytopenia [Fatal]
  - Leukopenia [Fatal]
